FAERS Safety Report 6101126-7 (Version None)
Quarter: 2009Q1

REPORT INFORMATION
  Report Type: 
  Country: None (occurrence: None)
  Receive Date: 20090304
  Receipt Date: 20090226
  Transmission Date: 20090719
  Serious: Yes (Other)
  Sender: FDA-Public Use
  Company Number: US-AVENTIS-200911539US

PATIENT
  Sex: Female

DRUGS (10)
  1. LANTUS [Suspect]
     Route: 058
     Dates: end: 20090101
  2. LANTUS [Suspect]
     Route: 058
     Dates: start: 20090101
  3. COZAAR [Concomitant]
     Dosage: DOSE: UNK
  4. NEXIUM [Concomitant]
  5. DETROL [Concomitant]
  6. PROZAC [Concomitant]
  7. FUROSEMIDE [Concomitant]
  8. ATENOL [Concomitant]
  9. MELOXICAM [Concomitant]
  10. HYDROCHLOROTHIAZIDE [Concomitant]

REACTIONS (2)
  - BLOOD GLUCOSE INCREASED [None]
  - MACULAR DEGENERATION [None]
